FAERS Safety Report 17296905 (Version 3)
Quarter: 2021Q1

REPORT INFORMATION
  Report Type: Spontaneous
  Country: JP (occurrence: JP)
  Receive Date: 20200122
  Receipt Date: 20210225
  Transmission Date: 20210419
  Serious: Yes (Death)
  Sender: FDA-Public Use
  Company Number: JP-AMGEN-JPNSP2020010209

PATIENT

DRUGS (1)
  1. ROMIPLATE [Suspect]
     Active Substance: ROMIPLOSTIM
     Indication: APLASTIC ANAEMIA
     Dosage: 20 MICROGRAM/KILOGRAM
     Route: 058
     Dates: start: 2019, end: 201912

REACTIONS (1)
  - Infection [Fatal]

NARRATIVE: CASE EVENT DATE: 201912
